FAERS Safety Report 14372212 (Version 3)
Quarter: 2018Q4

REPORT INFORMATION
  Report Type: Spontaneous
  Country: PT (occurrence: PT)
  Receive Date: 20180110
  Receipt Date: 20181003
  Transmission Date: 20190204
  Serious: Yes (Other)
  Sender: FDA-Public Use
  Company Number: PT-PFIZER INC-2018010469

PATIENT
  Age: 11 Year
  Sex: Male

DRUGS (1)
  1. METHYLPREDNISOLONE. [Suspect]
     Active Substance: METHYLPREDNISOLONE
     Indication: DERMATITIS ATOPIC
     Dosage: 16 MG, 1X/DAY (DAILY)
     Route: 048

REACTIONS (10)
  - Obesity [Recovering/Resolving]
  - Steatohepatitis [Recovered/Resolved]
  - Transaminases increased [Recovered/Resolved]
  - Insulin resistance [Recovered/Resolved]
  - Vitamin D deficiency [Recovering/Resolving]
  - Acanthosis nigricans [Recovering/Resolving]
  - Gynaecomastia [Recovering/Resolving]
  - Cushingoid [Recovering/Resolving]
  - Hirsutism [Recovering/Resolving]
  - Skin striae [Recovering/Resolving]
